FAERS Safety Report 5274193-0 (Version None)
Quarter: 2007Q1

REPORT INFORMATION
  Report Type: 
  Country: None (occurrence: None)
  Receive Date: 20070323
  Receipt Date: 20070322
  Transmission Date: 20070707
  Serious: Yes (Other)
  Sender: FDA-Public Use
  Company Number: US-BRISTOL-MYERS SQUIBB COMPANY-13722210

PATIENT
  Sex: Male

DRUGS (2)
  1. SUSTIVA [Suspect]
  2. TRUVADA [Suspect]

REACTIONS (1)
  - RENAL FAILURE ACUTE [None]
